FAERS Safety Report 13012965 (Version 1)
Quarter: 2016Q4

REPORT INFORMATION
  Report Type: Spontaneous
  Country: US (occurrence: US)
  Receive Date: 20161208
  Receipt Date: 20161208
  Transmission Date: 20170207
  Serious: Yes (Other)
  Sender: FDA-Public Use
  Company Number: None

PATIENT
  Age: 24 Year
  Sex: Female
  Weight: 76.5 kg

DRUGS (3)
  1. QUETIAPINE ER [Suspect]
     Active Substance: QUETIAPINE
     Indication: ANXIETY DISORDER
     Route: 048
     Dates: start: 20161126, end: 20161201
  2. SEROQUEL [Concomitant]
     Active Substance: QUETIAPINE FUMARATE
  3. QUETIAPINE. [Suspect]
     Active Substance: QUETIAPINE
     Indication: ANXIETY DISORDER
     Route: 048
     Dates: start: 20161201, end: 20161205

REACTIONS (1)
  - Headache [None]

NARRATIVE: CASE EVENT DATE: 20161128
